FAERS Safety Report 4878469-8 (Version None)
Quarter: 2005Q4

REPORT INFORMATION
  Report Type: 
  Country: None (occurrence: None)
  Receive Date: 20051209
  Receipt Date: 20050429
  Transmission Date: 20060501
  Serious: Yes (Other)
  Sender: FDA-Public Use
  Company Number: USA-2005-0020090

PATIENT
  Age: 38 Year
  Sex: Male
  Weight: 110.2 kg

DRUGS (3)
  1. OXYCONTIN [Suspect]
     Indication: PAIN
     Dosage: ORAL
     Route: 048
  2. PEGASYS [Suspect]
     Indication: HEPATITIS C
     Dosage: 180 MCG, WEEKLY, SUBCUTANEOUS
     Route: 058
     Dates: start: 20050125, end: 20050419
  3. COPEGUS [Suspect]
     Indication: HEPATITIS C
     Dosage: 1200 MG, DIALY, ORAL
     Route: 048
     Dates: start: 20050125, end: 20050419

REACTIONS (1)
  - DRUG ABUSER [None]
